FAERS Safety Report 8890048 (Version 2)
Quarter: 2012Q4

REPORT INFORMATION
  Report Type: 
  Country: US (occurrence: US)
  Receive Date: 20121107
  Receipt Date: 20121129
  Transmission Date: 20130627
  Serious: Yes (Other)
  Sender: FDA-Public Use
  Company Number: US-PFIZER INC-2012277419

PATIENT
  Age: 46 Year
  Sex: Female
  Weight: 49.89 kg

DRUGS (3)
  1. LYRICA [Suspect]
     Indication: NEUROPATHIC PAIN
     Dosage: 75 mg, 3x/day
     Dates: start: 2008
  2. LYRICA [Suspect]
     Dosage: 75 mg, as needed (2-3 times a week)
  3. LYRICA [Suspect]
     Dosage: 75 mg, 3x/day

REACTIONS (4)
  - Activities of daily living impaired [Recovered/Resolved]
  - Hypersensitivity [Unknown]
  - Somnolence [Recovered/Resolved]
  - Pain [Unknown]
